FAERS Safety Report 23205932 (Version 2)
Quarter: 2023Q4

REPORT INFORMATION
  Report Type: Report from Study
  Country: US (occurrence: US)
  Receive Date: 20231120
  Receipt Date: 20231130
  Transmission Date: 20240110
  Serious: Yes (Other)
  Sender: FDA-Public Use
  Company Number: US-ALXN-A202313908AA

PATIENT
  Sex: Female
  Weight: 63.492 kg

DRUGS (2)
  1. SOLIRIS [Suspect]
     Active Substance: ECULIZUMAB
     Indication: Paroxysmal nocturnal haemoglobinuria
     Dosage: UNK
     Route: 065
     Dates: start: 200804, end: 201903
  2. ULTOMIRIS [Suspect]
     Active Substance: RAVULIZUMAB-CWVZ
     Indication: Paroxysmal nocturnal haemoglobinuria
     Dosage: UNK
     Route: 065
     Dates: start: 201903, end: 202303

REACTIONS (11)
  - Dementia [Not Recovered/Not Resolved]
  - Myelodysplastic syndrome [Unknown]
  - Bruxism [Unknown]
  - Dysphagia [Unknown]
  - Muscular weakness [Unknown]
  - Face injury [Unknown]
  - Nasal injury [Unknown]
  - Mastication disorder [Unknown]
  - Dizziness [Unknown]
  - Fall [Unknown]
  - Anaemia [Unknown]

NARRATIVE: CASE EVENT DATE: 20230101
